FAERS Safety Report 24110680 (Version 1)
Quarter: 2024Q3

REPORT INFORMATION
  Report Type: Spontaneous
  Country: CN (occurrence: CN)
  Receive Date: 20240718
  Receipt Date: 20240718
  Transmission Date: 20241016
  Serious: Yes (Life-Threatening, Hospitalization)
  Sender: PFIZER
  Company Number: CN-PFIZER INC-PV202400093369

PATIENT
  Age: 8 Year
  Sex: Male
  Weight: 24.1 kg

DRUGS (2)
  1. CYTARABINE [Suspect]
     Active Substance: CYTARABINE
     Indication: Acute lymphocytic leukaemia
     Dosage: 0.035 G, 1X/DAY
     Route: 037
     Dates: start: 20240624, end: 20240624
  2. METHOTREXATE SODIUM [Suspect]
     Active Substance: METHOTREXATE SODIUM
     Indication: Acute lymphocytic leukaemia
     Dosage: 12.5 MG, 1X/DAY
     Route: 037
     Dates: start: 20240624, end: 20240624

REACTIONS (3)
  - Myelosuppression [Recovering/Resolving]
  - Febrile neutropenia [Recovering/Resolving]
  - Neutropenic infection [Recovering/Resolving]

NARRATIVE: CASE EVENT DATE: 20240628
